FAERS Safety Report 8128860-1 (Version None)
Quarter: 2012Q1

REPORT INFORMATION
  Report Type: 
  Country: None (occurrence: None)
  Receive Date: 20120210
  Receipt Date: 20110503
  Transmission Date: 20120608
  Serious: No
  Sender: FDA-Public Use
  Company Number: US-BRISTOL-MYERS SQUIBB COMPANY-15659444

PATIENT
  Age: 78 Year
  Sex: Female

DRUGS (3)
  1. LEFLUNOMIDE [Suspect]
     Dosage: FOR MANY YEARS
  2. PREDNISONE TAB [Suspect]
     Indication: ARTHRITIS
  3. ORENCIA [Suspect]
     Indication: RHEUMATOID ARTHRITIS
     Dosage: INTRP + RESTR ON JAN2011,LAST DOSE ON 14JAN2011
     Route: 042
     Dates: start: 20090301

REACTIONS (1)
  - INFECTED SKIN ULCER [None]
